FAERS Safety Report 19879625 (Version 1)
Quarter: 2021Q3

REPORT INFORMATION
  Report Type: Spontaneous
  Country: US (occurrence: US)
  Receive Date: 20210924
  Receipt Date: 20210924
  Transmission Date: 20211014
  Serious: Yes (Other)
  Sender: FDA-Public Use
  Company Number: US-PFIZER INC-2019507901

PATIENT
  Age: 81 Year

DRUGS (1)
  1. PRISTIQ EXTENDED?RELEASE [Suspect]
     Active Substance: DESVENLAFAXINE SUCCINATE
     Indication: BIPOLAR II DISORDER
     Dosage: 100 MG, DAILY
     Route: 048
     Dates: start: 20191119

REACTIONS (3)
  - Off label use [Unknown]
  - Cerebrovascular accident [Unknown]
  - Bradyphrenia [Unknown]
